FAERS Safety Report 25434259 (Version 1)
Quarter: 2025Q2

REPORT INFORMATION
  Report Type: Spontaneous
  Country: GB (occurrence: GB)
  Receive Date: 20250613
  Receipt Date: 20250613
  Transmission Date: 20250716
  Serious: Yes (Other)
  Sender: MYLAN
  Company Number: GB-MHRA-TPP41497010C4292677YC1749204157783

PATIENT
  Age: 14 Year
  Sex: Female
  Weight: 70 kg

DRUGS (8)
  1. METHYLPHENIDATE [Suspect]
     Active Substance: METHYLPHENIDATE
     Indication: Ill-defined disorder
     Dosage: 10 MILLIGRAM, BID (TAKE ONE IN THE MORNING, AND ANOTHER AT LUNCHTIME...)
     Dates: start: 20250416, end: 20250516
  2. METHYLPHENIDATE [Suspect]
     Active Substance: METHYLPHENIDATE
     Dosage: 10 MILLIGRAM, BID (TAKE ONE IN THE MORNING, AND ANOTHER AT LUNCHTIME...)
     Route: 065
     Dates: start: 20250416, end: 20250516
  3. METHYLPHENIDATE [Suspect]
     Active Substance: METHYLPHENIDATE
     Dosage: 10 MILLIGRAM, BID (TAKE ONE IN THE MORNING, AND ANOTHER AT LUNCHTIME...)
     Route: 065
     Dates: start: 20250416, end: 20250516
  4. METHYLPHENIDATE [Suspect]
     Active Substance: METHYLPHENIDATE
     Dosage: 10 MILLIGRAM, BID (TAKE ONE IN THE MORNING, AND ANOTHER AT LUNCHTIME...)
     Dates: start: 20250416, end: 20250516
  5. METHYLPHENIDATE HYDROCHLORIDE [Concomitant]
     Active Substance: METHYLPHENIDATE HYDROCHLORIDE
     Indication: Ill-defined disorder
     Dosage: 1 DOSAGE FORM, QD
     Dates: start: 20250416
  6. METHYLPHENIDATE HYDROCHLORIDE [Concomitant]
     Active Substance: METHYLPHENIDATE HYDROCHLORIDE
     Dosage: 1 DOSAGE FORM, QD
     Route: 065
     Dates: start: 20250416
  7. METHYLPHENIDATE HYDROCHLORIDE [Concomitant]
     Active Substance: METHYLPHENIDATE HYDROCHLORIDE
     Dosage: 1 DOSAGE FORM, QD
     Route: 065
     Dates: start: 20250416
  8. METHYLPHENIDATE HYDROCHLORIDE [Concomitant]
     Active Substance: METHYLPHENIDATE HYDROCHLORIDE
     Dosage: 1 DOSAGE FORM, QD
     Dates: start: 20250416

REACTIONS (4)
  - Anxiety [Recovered/Resolved]
  - Rash [Unknown]
  - Feeling hot [Unknown]
  - Swelling [Unknown]
